FAERS Safety Report 7490744-X (Version None)
Quarter: 2011Q2

REPORT INFORMATION
  Report Type: 
  Country: None (occurrence: None)
  Receive Date: 20110519
  Receipt Date: 20081001
  Transmission Date: 20111010
  Serious: Yes (Other)
  Sender: FDA-Public Use
  Company Number: US-BAYER-2011-009447

PATIENT
  Age: 47 Year
  Sex: Male
  Weight: 61 kg

DRUGS (14)
  1. CRESTOR [Concomitant]
     Dosage: 10 MG, QD
     Route: 048
  2. SYNTHROID [Concomitant]
     Dosage: 100 MCG/24HR, QD
     Route: 048
  3. PLASMA [Concomitant]
     Dosage: 3 U, ONCE
     Route: 042
     Dates: start: 20070710, end: 20070710
  4. PHENYLEPHRINE HCL [Concomitant]
     Dosage: 380 MCG/24HR, UNK
     Route: 042
     Dates: start: 20070710, end: 20070710
  5. ALBUMIN (HUMAN) [Concomitant]
     Dosage: UNK
     Route: 042
     Dates: start: 20070710
  6. HEPARIN [Concomitant]
     Dosage: 12ML
     Route: 042
     Dates: start: 20070710
  7. MANNITOL [Concomitant]
     Dosage: 150 ML, UNK
     Route: 042
     Dates: start: 20070710
  8. TRASYLOL [Suspect]
     Indication: CORONARY ARTERY BYPASS
     Dosage: 200 ML LOADING DOSE
     Route: 042
     Dates: start: 20070707, end: 20070707
  9. RED BLOOD CELLS [Concomitant]
     Dosage: 1 U, ONCE
     Route: 042
     Dates: start: 20070710, end: 20070710
  10. PLATELETS [Concomitant]
     Dosage: 1 U, ONCE
     Route: 042
     Dates: start: 20070710, end: 20070710
  11. TRASYLOL [Suspect]
     Indication: HEART VALVE REPLACEMENT
     Dosage: 1 ML, ONCE, INTIAL TEST DOSE
     Route: 042
     Dates: start: 20070710
  12. BISOPROLOL FUMARATE [Concomitant]
     Dosage: 5 MG, QD
     Route: 048
  13. ACETYLSALICYLIC ACID SRT [Concomitant]
     Dosage: 81 MG, QD
     Route: 048
  14. PLASMA-LYTE 56 AND DEXTROSE 5% IN PLASTIC CONTAINER [Concomitant]
     Dosage: 2000ML
     Route: 042
     Dates: start: 20070710

REACTIONS (8)
  - RESPIRATORY DISTRESS [None]
  - ANXIETY [None]
  - WEIGHT DECREASED [None]
  - PAIN [None]
  - DYSPHAGIA [None]
  - EMOTIONAL DISTRESS [None]
  - CHRONIC RESPIRATORY FAILURE [None]
  - INJURY [None]
